FAERS Safety Report 5038600-0 (Version None)
Quarter: 2006Q2

REPORT INFORMATION
  Report Type: 
  Country: None (occurrence: None)
  Receive Date: 20060629
  Receipt Date: 20060623
  Transmission Date: 20061013
  Serious: Yes (Other)
  Sender: FDA-Public Use
  Company Number: US-AVENTIS-200615445US

PATIENT
  Sex: Male

DRUGS (1)
  1. KETEK [Suspect]
     Indication: SINUSITIS
     Dosage: DOSE: UNK

REACTIONS (2)
  - ARTHRALGIA [None]
  - SERUM SICKNESS [None]
